FAERS Safety Report 14697534 (Version 1)
Quarter: 2018Q1

REPORT INFORMATION
  Report Type: Spontaneous
  Country: US (occurrence: US)
  Receive Date: 20180330
  Receipt Date: 20180330
  Transmission Date: 20180509
  Serious: No
  Sender: FDA-Public Use
  Company Number: US-SA-2017SA195747

PATIENT
  Age: 58 Year
  Sex: Female

DRUGS (2)
  1. ALLEGRA [Suspect]
     Active Substance: FEXOFENADINE HYDROCHLORIDE
     Indication: COUGH
     Dosage: DOSES FORM GELCAP
     Route: 048
  2. ALLEGRA [Suspect]
     Active Substance: FEXOFENADINE HYDROCHLORIDE
     Indication: MULTIPLE ALLERGIES
     Dosage: DOSES FORM GELCAP
     Route: 048

REACTIONS (3)
  - Asthenia [Unknown]
  - Pain [Unknown]
  - Pyrexia [Unknown]
